FAERS Safety Report 5979282-0 (Version None)
Quarter: 2008Q4

REPORT INFORMATION
  Report Type: 
  Country: None (occurrence: None)
  Receive Date: 20081204
  Receipt Date: 20070326
  Transmission Date: 20090506
  Serious: No
  Sender: FDA-Public Use
  Company Number: US-ABBOTT-07P-163-0363366-00

PATIENT
  Sex: Female
  Weight: 114 kg

DRUGS (2)
  1. TRICOR [Suspect]
     Indication: BLOOD TRIGLYCERIDES INCREASED
     Route: 048
     Dates: start: 20070305
  2. ETANERCEPT [Concomitant]
     Indication: PSORIASIS
     Route: 058
     Dates: start: 20030101

REACTIONS (3)
  - PHOTOSENSITIVITY REACTION [None]
  - PRURITUS [None]
  - SKIN BURNING SENSATION [None]
